FAERS Safety Report 8275320-3 (Version None)
Quarter: 2012Q2

REPORT INFORMATION
  Report Type: 
  Country: None (occurrence: None)
  Receive Date: 20120411
  Receipt Date: 20120328
  Transmission Date: 20120825
  Serious: Yes (Death, Hospitalization, Other)
  Sender: FDA-Public Use
  Company Number: JP-ROCHE-802407

PATIENT
  Sex: Male
  Weight: 38 kg

DRUGS (13)
  1. PREDNISOLONE [Concomitant]
     Route: 048
     Dates: start: 20101021
  2. CLEANAL [Concomitant]
     Route: 048
     Dates: start: 20110830
  3. RIKKUNSHI-TO [Concomitant]
     Route: 048
     Dates: start: 20110830
  4. BETAMETHASONE [Concomitant]
     Indication: RHEUMATOID ARTHRITIS
     Route: 065
     Dates: start: 20101111
  5. URSO 250 [Concomitant]
     Route: 048
  6. VANCOMYCIN [Concomitant]
     Dosage: DOSAGE IS UNCERTAIN
     Route: 041
     Dates: start: 20101102, end: 20101109
  7. MAGMITT [Concomitant]
     Route: 048
     Dates: start: 20110830
  8. PREDNISOLONE [Concomitant]
     Route: 048
     Dates: start: 20111102
  9. LANSOPRAZOLE [Concomitant]
     Route: 048
     Dates: start: 20110830
  10. COTRIM [Concomitant]
     Indication: ANTIFUNGAL PROPHYLAXIS
     Dosage: DOSAGE IS UNCERTAIN
     Route: 048
     Dates: start: 20101109
  11. ACTEMRA [Suspect]
     Indication: RHEUMATOID ARTHRITIS
     Route: 041
     Dates: start: 20101104, end: 20110829
  12. PREDNISOLONE [Concomitant]
     Indication: RHEUMATOID ARTHRITIS
     Route: 048
  13. MOBIC [Concomitant]
     Route: 048
     Dates: start: 20110830

REACTIONS (7)
  - DEHYDRATION [None]
  - DEATH [None]
  - DECUBITUS ULCER [None]
  - PNEUMONIA [None]
  - SKIN INFECTION [None]
  - INTERSTITIAL LUNG DISEASE [None]
  - CARDIAC FAILURE [None]
